FAERS Safety Report 6704118 (Version 2)
Quarter: 2019Q1

REPORT INFORMATION
  Report Type: Spontaneous
  Country: GB (occurrence: GB)
  Receive Date: 20080718
  Receipt Date: 20190308
  Transmission Date: 20190418
  Serious: Yes (Other)
  Sender: FDA-Public Use
  Company Number: GB-PFIZER INC-2008058041

PATIENT
  Age: 43 Year
  Sex: Male
  Weight: 70 kg

DRUGS (3)
  1. PENICILLIN-V [Concomitant]
     Active Substance: PENICILLIN V
     Dosage: 500 MG, 4X/DAY
     Route: 048
     Dates: start: 20080513
  2. COCAINE [Interacting]
     Active Substance: COCAINE
     Dosage: UNK
  3. CHAMPIX [Suspect]
     Active Substance: VARENICLINE TARTRATE
     Dosage: UNK
     Route: 048
     Dates: start: 200803

REACTIONS (2)
  - Drug interaction [Unknown]
  - Drug effect decreased [Unknown]
